FAERS Safety Report 7203455-2 (Version None)
Quarter: 2010Q4

REPORT INFORMATION
  Report Type: 
  Country: None (occurrence: None)
  Receive Date: 20101228
  Receipt Date: 20101228
  Transmission Date: 20110411
  Serious: Yes (Hospitalization)
  Sender: FDA-Public Use
  Company Number: None

PATIENT
  Age: 21 Year
  Sex: Female
  Weight: 50.7 kg

DRUGS (3)
  1. ALEFACEPT [Suspect]
     Indication: IMMUNOSUPPRESSION
     Dosage: 7.5 MG 12/20/10 IV PUSH ; 15 MG 12/27/10 SUBCUTANEOUS
     Route: 042
     Dates: start: 20101220
  2. ALEFACEPT [Suspect]
     Indication: IMMUNOSUPPRESSION
     Dosage: 7.5 MG 12/20/10 IV PUSH ; 15 MG 12/27/10 SUBCUTANEOUS
     Route: 042
     Dates: start: 20101222
  3. ALEFACEPT [Suspect]
     Indication: IMMUNOSUPPRESSION
     Dosage: 7.5 MG 12/20/10 IV PUSH ; 15 MG 12/27/10 SUBCUTANEOUS
     Route: 042
     Dates: start: 20101227

REACTIONS (1)
  - SUBCLAVIAN VEIN THROMBOSIS [None]
